FAERS Safety Report 6338564-3 (Version None)
Quarter: 2009Q3

REPORT INFORMATION
  Report Type: 
  Country: None (occurrence: None)
  Receive Date: 20090901
  Receipt Date: 20090818
  Transmission Date: 20100115
  Serious: Yes (Hospitalization, Other)
  Sender: FDA-Public Use
  Company Number: 2009SP003187

PATIENT
  Age: 2 Year
  Sex: Male
  Weight: 13 kg

DRUGS (1)
  1. COPPERTONE KIDS LOTION SPF 30 (OCTINOXATE/OXYBENZONE/OCTYL SALICYLATE/ [Suspect]
     Indication: PROPHYLAXIS AGAINST SOLAR RADIATION
     Dosage: ; ONCE; TOP
     Route: 061
     Dates: start: 20090208, end: 20090208

REACTIONS (3)
  - ERYTHEMA [None]
  - PRURITUS [None]
  - RASH [None]
